FAERS Safety Report 23973453 (Version 1)
Quarter: 2024Q2

REPORT INFORMATION
  Report Type: Spontaneous
  Country: US (occurrence: None)
  Receive Date: 20240613
  Receipt Date: 20240613
  Transmission Date: 20240716
  Serious: No
  Sender: FDA-Public Use
  Company Number: US-MDD US Operations-MDD202311-004551

PATIENT
  Age: 45 Year
  Sex: Female

DRUGS (2)
  1. APOKYN [Suspect]
     Active Substance: APOMORPHINE HYDROCHLORIDE
     Indication: Parkinson^s disease
     Dosage: HAD ONLY ONE DOSE
     Dates: start: 20231120
  2. APOKYN [Suspect]
     Active Substance: APOMORPHINE HYDROCHLORIDE

REACTIONS (6)
  - Lethargy [Recovered/Resolved]
  - Fatigue [Recovered/Resolved]
  - Somnolence [Recovered/Resolved]
  - Nausea [Recovered/Resolved]
  - Drug ineffective [Unknown]
  - Therapeutic product effect incomplete [Unknown]

NARRATIVE: CASE EVENT DATE: 20231120
